FAERS Safety Report 21927471 (Version 1)
Quarter: 2023Q1

REPORT INFORMATION
  Report Type: Other
  Country: US (occurrence: US)
  Receive Date: 20230130
  Receipt Date: 20230130
  Transmission Date: 20230418
  Serious: Yes (Hospitalization)
  Sender: FDA-Public Use
  Company Number: US-MAYNE PHARMA-2023MYN000137

PATIENT

DRUGS (1)
  1. CLOZAPINE [Suspect]
     Active Substance: CLOZAPINE
     Indication: Product used for unknown indication
     Dosage: 400 MG (50 MG IN THE MORNING + 350 MG IN THE NIGHT)
     Route: 048

REACTIONS (2)
  - Pyelonephritis [Unknown]
  - Urinary retention [Unknown]

NARRATIVE: CASE EVENT DATE: 20230111
